FAERS Safety Report 18826913 (Version 1)
Quarter: 2021Q1

REPORT INFORMATION
  Report Type: Spontaneous
  Country: US (occurrence: US)
  Receive Date: 20210202
  Receipt Date: 20210202
  Transmission Date: 20210419
  Serious: No
  Sender: FDA-Public Use
  Company Number: US-PERRIGO-20US018671

PATIENT
  Age: 81 Year
  Sex: Female
  Weight: 58.96 kg

DRUGS (5)
  1. OXYBUTYNIN. [Concomitant]
     Active Substance: OXYBUTYNIN CHLORIDE
     Indication: BLADDER DISORDER
     Dosage: UNKNOWN, UNKNOWN
     Route: 065
  2. LEXAPRO [Concomitant]
     Active Substance: ESCITALOPRAM OXALATE
     Indication: DEPRESSION
     Dosage: UNKNOWN, UNKNOWN
     Route: 065
  3. TRAZODONE [Concomitant]
     Active Substance: TRAZODONE HYDROCHLORIDE
     Indication: INSOMNIA
     Dosage: UNKNOWN, UNKNOWN
     Route: 065
  4. VYTORIN [Concomitant]
     Active Substance: EZETIMIBE\SIMVASTATIN
     Indication: BLOOD CHOLESTEROL INCREASED
     Dosage: UNKNOWN,UNKNOWN
     Route: 065
  5. ESTRADIOL. [Suspect]
     Active Substance: ESTRADIOL
     Indication: CYSTITIS
     Dosage: 1 G, TWICE WEEKLY
     Route: 067
     Dates: start: 20201026, end: 20201107

REACTIONS (3)
  - Vulvovaginal pruritus [Recovered/Resolved]
  - Off label use [Recovered/Resolved]
  - Genital pain [Recovered/Resolved]

NARRATIVE: CASE EVENT DATE: 20201026
